FAERS Safety Report 16158988 (Version 2)
Quarter: 2019Q2

REPORT INFORMATION
  Report Type: Spontaneous
  Country: JP (occurrence: JP)
  Receive Date: 20190404
  Receipt Date: 20190416
  Transmission Date: 20190711
  Serious: Yes (Other)
  Sender: FDA-Public Use
  Company Number: JP-OTSUKA-2019_009373AA

PATIENT
  Sex: Male

DRUGS (4)
  1. TACROLIMUS MONOHYDRATE [Suspect]
     Active Substance: TACROLIMUS
     Indication: PROPHYLAXIS AGAINST GRAFT VERSUS HOST DISEASE
     Dosage: UNK
     Route: 065
  2. BUSULFEX [Suspect]
     Active Substance: BUSULFAN
     Indication: STEM CELL TRANSPLANT
     Dosage: 3.2 MG/KG, DAILY DOSE
     Route: 065
  3. CYCLOPHOSPHAMIDE MONOHYDRATE [Suspect]
     Active Substance: CYCLOPHOSPHAMIDE
     Indication: STEM CELL TRANSPLANT
     Dosage: UNK
     Route: 065
  4. METHOTREXATE. [Suspect]
     Active Substance: METHOTREXATE
     Indication: PROPHYLAXIS AGAINST GRAFT VERSUS HOST DISEASE
     Dosage: UNK
     Route: 065

REACTIONS (1)
  - Pulmonary tuberculosis [Unknown]
